FAERS Safety Report 20115899 (Version 4)
Quarter: 2022Q4

REPORT INFORMATION
  Report Type: Report from Study
  Country: JP (occurrence: JP)
  Receive Date: 20211126
  Receipt Date: 20221222
  Transmission Date: 20230113
  Serious: Yes (Hospitalization)
  Sender: FDA-Public Use
  Company Number: JP-ABBVIE-21K-087-4176332-00

PATIENT
  Age: 70 Year
  Sex: Male
  Weight: 73 kg

DRUGS (11)
  1. CARBIDOPA\LEVODOPA [Suspect]
     Active Substance: CARBIDOPA\LEVODOPA
     Indication: Parkinson^s disease
     Dosage: MD : 5.3 ML?CD : 1.6 ML/HR ? 16 HRS
     Route: 050
     Dates: start: 20180412, end: 20180413
  2. CARBIDOPA\LEVODOPA [Suspect]
     Active Substance: CARBIDOPA\LEVODOPA
     Dosage: MD : 8.3 ML ?CD : 2.3 ML/HR ? 16 HRS?ED : 1.5 ML/UNIT ? 2 TIMES
     Route: 050
     Dates: start: 20180420, end: 20190513
  3. CARBIDOPA\LEVODOPA [Suspect]
     Active Substance: CARBIDOPA\LEVODOPA
     Dosage: MD: 8.3 ML?CD: 2.5 ML/HR ? 16 HRS ?ED: 1.5 ML/UNIT ? 1
     Route: 050
     Dates: start: 20190514, end: 20190519
  4. CARBIDOPA\LEVODOPA [Suspect]
     Active Substance: CARBIDOPA\LEVODOPA
     Dosage: MD: 8.3 M\L?CD: 2.7 ML/HR ? 16 HRS ?ED: 1.5 ML/UNIT ? 1
     Route: 050
     Dates: start: 20190520
  5. ISTRADEFYLLINE [Concomitant]
     Active Substance: ISTRADEFYLLINE
     Indication: Parkinson^s disease
  6. ZONISAMIDE [Concomitant]
     Active Substance: ZONISAMIDE
     Indication: Parkinson^s disease
     Route: 048
  7. PRAMIPEXOLE DIHYDROCHLORIDE [Concomitant]
     Active Substance: PRAMIPEXOLE DIHYDROCHLORIDE
     Indication: Parkinson^s disease
     Route: 048
  8. CLONAZEPAM [Concomitant]
     Active Substance: CLONAZEPAM
     Indication: Prophylaxis
     Route: 048
     Dates: start: 20180425
  9. FLUDROCORTISONE ACETATE [Concomitant]
     Active Substance: FLUDROCORTISONE ACETATE
     Indication: Prophylaxis
     Route: 048
     Dates: start: 20180427
  10. BROTIZOLAM [Concomitant]
     Active Substance: BROTIZOLAM
     Indication: Product used for unknown indication
     Route: 048
     Dates: start: 20180501
  11. Senna glycoside [Concomitant]
     Indication: Product used for unknown indication
     Route: 048
     Dates: start: 20180501

REACTIONS (10)
  - Laryngeal haematoma [Unknown]
  - Fall [Unknown]
  - Skin abrasion [Recovered/Resolved]
  - Back pain [Unknown]
  - Wrong technique in device usage process [Unknown]
  - Road traffic accident [Recovered/Resolved]
  - Device failure [Unknown]
  - On and off phenomenon [Recovered/Resolved]
  - Stoma site extravasation [Unknown]
  - Stoma site inflammation [Recovered/Resolved]

NARRATIVE: CASE EVENT DATE: 20180521
